FAERS Safety Report 25640215 (Version 3)
Quarter: 2025Q3

REPORT INFORMATION
  Report Type: Spontaneous
  Country: EU (occurrence: EU)
  Receive Date: 20250804
  Receipt Date: 20250823
  Transmission Date: 20251020
  Serious: Yes (Death, Life-Threatening, Hospitalization, Other)
  Sender: MACLEODS
  Company Number: EU-MACLEODS PHARMA-MAC2025054409

PATIENT

DRUGS (9)
  1. VENLAFAXINE [Suspect]
     Active Substance: VENLAFAXINE HYDROCHLORIDE
     Indication: Depression
     Route: 048
  2. VENLAFAXINE [Suspect]
     Active Substance: VENLAFAXINE HYDROCHLORIDE
     Route: 048
  3. ACETAMINOPHEN [Suspect]
     Active Substance: ACETAMINOPHEN
     Indication: Product used for unknown indication
     Route: 048
  4. MIRTAZAPINE [Suspect]
     Active Substance: MIRTAZAPINE
     Indication: Depression
     Route: 048
  5. MIRTAZAPINE [Suspect]
     Active Substance: MIRTAZAPINE
     Route: 048
  6. OXAZEPAM [Suspect]
     Active Substance: OXAZEPAM
     Indication: Anxiety disorder
     Route: 048
  7. OXAZEPAM [Suspect]
     Active Substance: OXAZEPAM
     Route: 048
  8. ZOPICLONE [Suspect]
     Active Substance: ZOPICLONE
     Indication: Sleep disorder
     Route: 048
  9. ZOPICLONE [Suspect]
     Active Substance: ZOPICLONE
     Route: 048

REACTIONS (17)
  - Toxicity to various agents [Fatal]
  - Multiple organ dysfunction syndrome [Fatal]
  - Bezoar [Fatal]
  - Hypothermia [Fatal]
  - Miosis [Fatal]
  - Electrocardiogram QT prolonged [Fatal]
  - Serotonin syndrome [Fatal]
  - Completed suicide [Fatal]
  - Acute respiratory distress syndrome [Fatal]
  - Shock [Fatal]
  - Coma [Fatal]
  - Intentional overdose [Fatal]
  - Hyperhidrosis [Unknown]
  - Altered state of consciousness [Unknown]
  - Agitation [Unknown]
  - Tremor [Unknown]
  - Diarrhoea [Unknown]
